FAERS Safety Report 12619030 (Version 1)
Quarter: 2016Q3

REPORT INFORMATION
  Report Type: Spontaneous
  Country: US (occurrence: US)
  Receive Date: 20160803
  Receipt Date: 20160803
  Transmission Date: 20161109
  Serious: No
  Sender: FDA-Public Use
  Company Number: US-009507513-1607USA007803

PATIENT
  Age: 39 Year
  Sex: Male

DRUGS (1)
  1. BELSOMRA [Suspect]
     Active Substance: SUVOREXANT
     Indication: INSOMNIA
     Dosage: 10 MG, 3 TIMES PER DAY
     Route: 048
     Dates: start: 201605

REACTIONS (6)
  - Erectile dysfunction [Unknown]
  - Inappropriate schedule of drug administration [Unknown]
  - Abnormal dreams [Unknown]
  - Overdose [Unknown]
  - Prescription drug used without a prescription [Unknown]
  - Sleep sex [Unknown]

NARRATIVE: CASE EVENT DATE: 201605
